FAERS Safety Report 5396298-6 (Version None)
Quarter: 2007Q3

REPORT INFORMATION
  Report Type: 
  Country: None (occurrence: None)
  Receive Date: 20070718
  Receipt Date: 20070507
  Transmission Date: 20080115
  Serious: Yes (Hospitalization, Other)
  Sender: FDA-Public Use
  Company Number: 2006140173

PATIENT
  Sex: Male

DRUGS (2)
  1. CELEBREX [Suspect]
     Indication: PAIN IN EXTREMITY
     Dosage: 400 MG (200 MG,2 IN 1 D),ORAL
     Route: 048
     Dates: start: 19980101
  2. VIOXX [Suspect]
     Dates: start: 20001101

REACTIONS (2)
  - CEREBROVASCULAR ACCIDENT [None]
  - PAIN IN EXTREMITY [None]
